FAERS Safety Report 6894849-3 (Version None)
Quarter: 2010Q3

REPORT INFORMATION
  Report Type: 
  Country: None (occurrence: None)
  Receive Date: 20100730
  Receipt Date: 20100730
  Transmission Date: 20110219
  Serious: Yes (Life-Threatening)
  Sender: FDA-Public Use
  Company Number: None

PATIENT
  Sex: Female
  Weight: 64.4108 kg

DRUGS (2)
  1. VIVELLE-DOT [Suspect]
     Indication: BONE DENSITY DECREASED
     Dosage: .025 MG 2X WEEK
  2. VIVELLE-DOT [Suspect]
     Indication: MENOPAUSE
     Dosage: .025 MG 2X WEEK

REACTIONS (4)
  - BREAST CANCER [None]
  - MAMMOGRAM ABNORMAL [None]
  - OESTROGEN RECEPTOR ASSAY POSITIVE [None]
  - PROGESTERONE RECEPTOR ASSAY POSITIVE [None]
